FAERS Safety Report 6378990-X (Version None)
Quarter: 2009Q3

REPORT INFORMATION
  Report Type: 
  Country: None (occurrence: None)
  Receive Date: 20090928
  Receipt Date: 20090916
  Transmission Date: 20100115
  Serious: Yes (Other)
  Sender: FDA-Public Use
  Company Number: PHHY2009JP38529

PATIENT
  Sex: Female
  Weight: 35 kg

DRUGS (10)
  1. ZOMETA [Suspect]
     Indication: METASTASES TO BONE
     Dosage: 4 MG, TIW
     Route: 042
     Dates: start: 20090127, end: 20090217
  2. BISPHONAL [Suspect]
     Dosage: UNK
     Route: 042
     Dates: start: 20080801, end: 20080901
  3. TAXOTERE [Concomitant]
     Dosage: 43 MG, UNK
     Route: 042
     Dates: start: 20090106
  4. FARMORUBICIN [Concomitant]
     Dosage: UNK
     Route: 042
     Dates: start: 20080801, end: 20081220
  5. ENDOXAN [Concomitant]
     Dosage: UNK
     Route: 042
     Dates: start: 20080801, end: 20081220
  6. FLUOROURACIL [Concomitant]
     Dosage: UNK
     Route: 042
     Dates: start: 20080801, end: 20081220
  7. LEVOFLOXACIN [Concomitant]
     Dosage: UNK
     Route: 048
     Dates: start: 20090811
  8. CISPLATIN [Concomitant]
     Dosage: UNK
     Route: 042
     Dates: start: 20080801, end: 20081220
  9. DOXORUBICIN HCL [Concomitant]
     Dosage: UNK
     Route: 042
     Dates: start: 20080801, end: 20081220
  10. ARIMIDEX [Concomitant]
     Route: 048

REACTIONS (6)
  - ASPARTATE AMINOTRANSFERASE INCREASED [None]
  - BONE DISORDER [None]
  - OSTEOMYELITIS [None]
  - PURULENT DISCHARGE [None]
  - SWELLING [None]
  - TOOTH EXTRACTION [None]
